FAERS Safety Report 14030221 (Version 25)
Quarter: 2019Q4

REPORT INFORMATION
  Report Type: Spontaneous
  Country: US (occurrence: US)
  Receive Date: 20171002
  Receipt Date: 20191226
  Transmission Date: 20200122
  Serious: Yes (Hospitalization)
  Sender: FDA-Public Use
  Company Number: US-ACTELION-A-NJ2017-160275

PATIENT
  Age: 40 Year
  Sex: Male
  Weight: 91.61 kg

DRUGS (16)
  1. VELETRI [Suspect]
     Active Substance: EPOPROSTENOL
     Dosage: 12 NG/KG, PER MIN
     Route: 042
  2. LETAIRIS [Concomitant]
     Active Substance: AMBRISENTAN
     Dosage: UNK
  3. LYRICA [Concomitant]
     Active Substance: PREGABALIN
     Dosage: UNK
  4. AMBRISENTAN [Concomitant]
     Active Substance: AMBRISENTAN
  5. SILDENAFIL CITRATE. [Concomitant]
     Active Substance: SILDENAFIL CITRATE
  6. ALDACTONE [Concomitant]
     Active Substance: SPIRONOLACTONE
  7. VELETRI [Suspect]
     Active Substance: EPOPROSTENOL
     Indication: PULMONARY ARTERIAL HYPERTENSION
     Dosage: 3 NG/KG, PER MIN
     Route: 042
     Dates: start: 201709
  8. XARELTO [Concomitant]
     Active Substance: RIVAROXABAN
  9. K-DUR [Concomitant]
     Active Substance: POTASSIUM CHLORIDE
  10. ZANTAC [Concomitant]
     Active Substance: RANITIDINE HYDROCHLORIDE
     Dosage: UNK
  11. COMBIVENT [Concomitant]
     Active Substance: ALBUTEROL SULFATE\IPRATROPIUM BROMIDE
  12. VELETRI [Suspect]
     Active Substance: EPOPROSTENOL
     Dosage: 13 NG/KG, PER MIN
     Route: 042
  13. VELETRI [Suspect]
     Active Substance: EPOPROSTENOL
     Dosage: 13.5 NG/KG, PER MIN
     Route: 042
  14. VELETRI [Suspect]
     Active Substance: EPOPROSTENOL
     Dosage: 9 NG/KG, PER MIN
     Route: 042
  15. LASIX [Concomitant]
     Active Substance: FUROSEMIDE
     Dosage: UNK
  16. PRILOSEC [Concomitant]
     Active Substance: OMEPRAZOLE MAGNESIUM
     Dosage: UNK

REACTIONS (36)
  - Nausea [Recovered/Resolved]
  - Pain in extremity [Unknown]
  - Arthralgia [Not Recovered/Not Resolved]
  - Dry skin [Unknown]
  - Dyspnoea [Recovered/Resolved]
  - Hypotension [Recovered/Resolved]
  - Hypoxia [Recovered/Resolved]
  - Fluid overload [Recovered/Resolved]
  - Migraine [Unknown]
  - Catheter site erythema [Unknown]
  - Skin disorder [Unknown]
  - Myalgia [Unknown]
  - Vomiting [Recovered/Resolved]
  - Catheter site haemorrhage [Unknown]
  - Drug dose omission by device [Unknown]
  - Device physical property issue [Recovered/Resolved]
  - Diarrhoea [Recovered/Resolved]
  - Photosensitivity reaction [Unknown]
  - Condition aggravated [Unknown]
  - Insomnia [Not Recovered/Not Resolved]
  - Muscular weakness [Recovered/Resolved]
  - Nephrolithiasis [Unknown]
  - Application site pruritus [Unknown]
  - Gastrooesophageal reflux disease [Unknown]
  - Device infusion issue [Recovered/Resolved]
  - Nasal congestion [Unknown]
  - Cardiac failure [Recovered/Resolved]
  - Enterocolitis [Recovered/Resolved]
  - Device malfunction [Unknown]
  - Arthritis [Unknown]
  - Abdominal discomfort [Unknown]
  - Eye irritation [Unknown]
  - Device occlusion [Recovered/Resolved]
  - Headache [Unknown]
  - Catheter site pruritus [Unknown]
  - Pain [Unknown]

NARRATIVE: CASE EVENT DATE: 20181128
